FAERS Safety Report 20691393 (Version 1)
Quarter: 2022Q2

REPORT INFORMATION
  Report Type: Spontaneous
  Country: US (occurrence: US)
  Receive Date: 20220408
  Receipt Date: 20220408
  Transmission Date: 20220720
  Serious: No
  Sender: FDA-Public Use
  Company Number: US-SA-SAC20220407000098

PATIENT
  Age: 62 Year
  Sex: Female

DRUGS (16)
  1. DUPIXENT [Suspect]
     Active Substance: DUPILUMAB
     Indication: Dermatitis atopic
     Dosage: 300 MG, QOW
     Route: 058
     Dates: start: 201907
  2. ALPRAZOLAM [Concomitant]
     Active Substance: ALPRAZOLAM
  3. BENADRYL [Concomitant]
     Active Substance: DIPHENHYDRAMINE HYDROCHLORIDE
  4. CALCITRIOL [Concomitant]
     Active Substance: CALCITRIOL
  5. CALCIUM CITRATE [Concomitant]
     Active Substance: CALCIUM CITRATE
  6. ESCITALOPRAM OXALATE [Concomitant]
     Active Substance: ESCITALOPRAM OXALATE
  7. EXCEDRIN EXTRA STRENGTH [Concomitant]
     Active Substance: ACETAMINOPHEN\ASPIRIN\CAFFEINE
  8. RECLAST [Concomitant]
     Active Substance: ZOLEDRONIC ACID
  9. TUMS [Concomitant]
     Active Substance: CALCIUM CARBONATE
  10. TYLENOL EXTRA STRENGTH [Concomitant]
     Active Substance: ACETAMINOPHEN
  11. FOODSTATE PROBIOTIC FORMULA [Concomitant]
  12. VITAMIN D3 [Concomitant]
     Active Substance: CHOLECALCIFEROL
  13. VITAMIN K [Concomitant]
     Active Substance: PHYTONADIONE
  14. RETINOL [Concomitant]
     Active Substance: RETINOL
  15. SOAP [Concomitant]
     Active Substance: SOAP
  16. DAILY-VITE [Concomitant]

REACTIONS (3)
  - Injection site swelling [Recovered/Resolved]
  - Injection site pain [Unknown]
  - Dry skin [Unknown]
